FAERS Safety Report 21484048 (Version 20)
Quarter: 2024Q4

REPORT INFORMATION
  Report Type: Report from Study
  Country: CA (occurrence: CA)
  Receive Date: 20221020
  Receipt Date: 20241209
  Transmission Date: 20250115
  Serious: Yes (Other)
  Sender: ROCHE
  Company Number: CA-ROCHE-2351549

PATIENT
  Age: 71 Year
  Sex: Male
  Weight: 68 kg

DRUGS (76)
  1. HERCEPTIN [Suspect]
     Active Substance: TRASTUZUMAB
     Indication: Gastrooesophageal cancer
     Route: 042
     Dates: start: 20190703, end: 20190703
  2. HERCEPTIN [Suspect]
     Active Substance: TRASTUZUMAB
     Route: 042
     Dates: start: 20190724, end: 20200311
  3. HERCEPTIN [Suspect]
     Active Substance: TRASTUZUMAB
     Route: 042
     Dates: start: 20200330, end: 20200330
  4. HERCEPTIN [Suspect]
     Active Substance: TRASTUZUMAB
     Route: 042
     Dates: start: 20200422, end: 20200422
  5. HERCEPTIN [Suspect]
     Active Substance: TRASTUZUMAB
     Route: 042
     Dates: start: 20200513, end: 20220304
  6. HERCEPTIN [Suspect]
     Active Substance: TRASTUZUMAB
     Route: 042
     Dates: start: 20220325, end: 20230809
  7. HERCEPTIN [Suspect]
     Active Substance: TRASTUZUMAB
     Route: 042
     Dates: start: 20230828
  8. HERCEPTIN [Suspect]
     Active Substance: TRASTUZUMAB
     Dosage: DOSING UNKNOWN - COMING OFF JACOB TRIAL. PER ENROLLMENT COMPASSIONATE DRUG FROM ROCHE SINCE 2013
     Route: 042
     Dates: end: 20190702
  9. HERCEPTIN [Suspect]
     Active Substance: TRASTUZUMAB
     Route: 042
     Dates: start: 20200311
  10. HERCEPTIN [Suspect]
     Active Substance: TRASTUZUMAB
     Route: 042
     Dates: start: 20200810
  11. HERCEPTIN [Suspect]
     Active Substance: TRASTUZUMAB
     Route: 042
  12. HERCEPTIN [Suspect]
     Active Substance: TRASTUZUMAB
     Route: 042
  13. HERCEPTIN [Suspect]
     Active Substance: TRASTUZUMAB
     Route: 042
     Dates: start: 20200330
  14. HERCEPTIN [Suspect]
     Active Substance: TRASTUZUMAB
     Dosage: UNKNOWN PATIENT CAME OFF OF JACOB TRIAL (JCC)
     Route: 042
  15. HERCEPTIN [Suspect]
     Active Substance: TRASTUZUMAB
     Route: 042
  16. HERCEPTIN [Suspect]
     Active Substance: TRASTUZUMAB
     Route: 042
  17. HERCEPTIN [Suspect]
     Active Substance: TRASTUZUMAB
     Route: 042
  18. HERCEPTIN [Suspect]
     Active Substance: TRASTUZUMAB
     Route: 042
  19. HERCEPTIN [Suspect]
     Active Substance: TRASTUZUMAB
     Route: 042
  20. HERCEPTIN [Suspect]
     Active Substance: TRASTUZUMAB
     Route: 042
  21. HERCEPTIN [Suspect]
     Active Substance: TRASTUZUMAB
     Route: 042
  22. HERCEPTIN [Suspect]
     Active Substance: TRASTUZUMAB
     Route: 042
  23. HERCEPTIN [Suspect]
     Active Substance: TRASTUZUMAB
     Route: 042
  24. HERCEPTIN [Suspect]
     Active Substance: TRASTUZUMAB
     Route: 042
  25. HERCEPTIN [Suspect]
     Active Substance: TRASTUZUMAB
     Route: 042
  26. HERCEPTIN [Suspect]
     Active Substance: TRASTUZUMAB
     Route: 042
  27. HERCEPTIN [Suspect]
     Active Substance: TRASTUZUMAB
     Route: 042
  28. HERCEPTIN [Suspect]
     Active Substance: TRASTUZUMAB
     Route: 042
  29. HERCEPTIN [Suspect]
     Active Substance: TRASTUZUMAB
     Route: 042
  30. HERCEPTIN [Suspect]
     Active Substance: TRASTUZUMAB
     Route: 042
  31. HERCEPTIN [Suspect]
     Active Substance: TRASTUZUMAB
     Route: 042
  32. HERCEPTIN [Suspect]
     Active Substance: TRASTUZUMAB
     Route: 042
  33. HERCEPTIN [Suspect]
     Active Substance: TRASTUZUMAB
     Route: 042
  34. HERCEPTIN [Suspect]
     Active Substance: TRASTUZUMAB
     Route: 042
  35. HERCEPTIN [Suspect]
     Active Substance: TRASTUZUMAB
     Route: 042
  36. HERCEPTIN [Suspect]
     Active Substance: TRASTUZUMAB
     Route: 042
  37. HERCEPTIN [Suspect]
     Active Substance: TRASTUZUMAB
     Route: 042
  38. HERCEPTIN [Suspect]
     Active Substance: TRASTUZUMAB
     Route: 042
  39. HERCEPTIN [Suspect]
     Active Substance: TRASTUZUMAB
     Route: 042
  40. HERCEPTIN [Suspect]
     Active Substance: TRASTUZUMAB
     Route: 042
  41. HERCEPTIN [Suspect]
     Active Substance: TRASTUZUMAB
     Route: 042
  42. HERCEPTIN [Suspect]
     Active Substance: TRASTUZUMAB
     Route: 042
  43. HERCEPTIN [Suspect]
     Active Substance: TRASTUZUMAB
     Route: 042
  44. PERJETA [Suspect]
     Active Substance: PERTUZUMAB
     Indication: Gastrooesophageal cancer
     Route: 042
     Dates: start: 20190703, end: 20190703
  45. PERJETA [Suspect]
     Active Substance: PERTUZUMAB
     Route: 042
  46. PERJETA [Suspect]
     Active Substance: PERTUZUMAB
     Route: 042
  47. PERJETA [Suspect]
     Active Substance: PERTUZUMAB
     Route: 042
  48. PERJETA [Suspect]
     Active Substance: PERTUZUMAB
     Route: 042
  49. PERJETA [Suspect]
     Active Substance: PERTUZUMAB
     Route: 042
  50. PERJETA [Suspect]
     Active Substance: PERTUZUMAB
     Route: 042
  51. PERJETA [Suspect]
     Active Substance: PERTUZUMAB
     Route: 042
  52. PERJETA [Suspect]
     Active Substance: PERTUZUMAB
     Route: 042
  53. PERJETA [Suspect]
     Active Substance: PERTUZUMAB
     Route: 042
  54. PERJETA [Suspect]
     Active Substance: PERTUZUMAB
     Route: 042
  55. PERJETA [Suspect]
     Active Substance: PERTUZUMAB
     Route: 042
  56. PERJETA [Suspect]
     Active Substance: PERTUZUMAB
     Route: 042
  57. PERJETA [Suspect]
     Active Substance: PERTUZUMAB
     Route: 042
  58. PERJETA [Suspect]
     Active Substance: PERTUZUMAB
     Route: 042
  59. PERJETA [Suspect]
     Active Substance: PERTUZUMAB
     Route: 042
  60. PERJETA [Suspect]
     Active Substance: PERTUZUMAB
     Route: 042
  61. PERJETA [Suspect]
     Active Substance: PERTUZUMAB
     Route: 042
  62. PERJETA [Suspect]
     Active Substance: PERTUZUMAB
     Route: 042
  63. PERJETA [Suspect]
     Active Substance: PERTUZUMAB
     Route: 042
  64. PERJETA [Suspect]
     Active Substance: PERTUZUMAB
     Route: 042
  65. PERJETA [Suspect]
     Active Substance: PERTUZUMAB
     Route: 042
  66. PERJETA [Suspect]
     Active Substance: PERTUZUMAB
     Route: 042
  67. PERJETA [Suspect]
     Active Substance: PERTUZUMAB
     Route: 042
  68. PERJETA [Suspect]
     Active Substance: PERTUZUMAB
     Route: 042
  69. PERJETA [Suspect]
     Active Substance: PERTUZUMAB
     Route: 042
  70. PERJETA [Suspect]
     Active Substance: PERTUZUMAB
     Route: 042
     Dates: start: 20190703, end: 20190703
  71. PERJETA [Suspect]
     Active Substance: PERTUZUMAB
     Route: 042
     Dates: start: 20190724, end: 20200311
  72. PERJETA [Suspect]
     Active Substance: PERTUZUMAB
     Route: 042
     Dates: start: 20190703, end: 20200311
  73. PERJETA [Suspect]
     Active Substance: PERTUZUMAB
     Route: 042
     Dates: start: 20190703
  74. ACETAMINOPHEN [Concomitant]
     Active Substance: ACETAMINOPHEN
     Indication: Premedication
     Route: 048
     Dates: start: 20190703
  75. NEXIUM [Concomitant]
     Active Substance: ESOMEPRAZOLE MAGNESIUM
  76. FAMCICLOVIR [Concomitant]
     Active Substance: FAMCICLOVIR
     Indication: Rash
     Dates: start: 2020

REACTIONS (16)
  - Pneumonia [Unknown]
  - Heart rate decreased [Unknown]
  - Blood pressure diastolic abnormal [Unknown]
  - Blood pressure diastolic decreased [Unknown]
  - Oxygen saturation decreased [Unknown]
  - Weight decreased [Unknown]
  - Blood pressure systolic increased [Unknown]
  - Blood pressure systolic abnormal [Unknown]
  - Weight increased [Unknown]
  - Decreased appetite [Recovered/Resolved]
  - Influenza like illness [Unknown]
  - Pyrexia [Recovered/Resolved]
  - Off label use [Unknown]
  - Cough [Recovered/Resolved]
  - Oropharyngeal pain [Recovered/Resolved]
  - Nasal congestion [Recovered/Resolved]

NARRATIVE: CASE EVENT DATE: 20190703
